FAERS Safety Report 5451184-8 (Version None)
Quarter: 2007Q3

REPORT INFORMATION
  Report Type: 
  Country: None (occurrence: None)
  Receive Date: 20070913
  Receipt Date: 20070906
  Transmission Date: 20080115
  Serious: Yes (Life-Threatening, Hospitalization)
  Sender: FDA-Public Use
  Company Number: JP-AVENTIS-200712249JP

PATIENT
  Age: 83 Year
  Sex: Male
  Weight: 37 kg

DRUGS (18)
  1. AMARYL [Suspect]
     Indication: DIABETES MELLITUS
     Route: 048
     Dates: start: 20040131, end: 20040213
  2. AMARYL [Suspect]
     Route: 048
     Dates: start: 20040214, end: 20040827
  3. AMARYL [Suspect]
     Route: 048
     Dates: start: 20040828, end: 20070312
  4. LEVOFLOXACIN [Suspect]
     Dosage: DOSE: 1 TABLETS
     Route: 048
     Dates: start: 20061216, end: 20070627
  5. GLUCOBAY [Suspect]
     Indication: DIABETES MELLITUS
     Dosage: DOSE: 1 TABLET
     Route: 048
     Dates: start: 20040131, end: 20070312
  6. AMLODIPINE [Concomitant]
     Indication: HYPERTENSION
     Dosage: DOSE: 1TABLETS
     Route: 048
     Dates: start: 20070310
  7. NORVASC [Concomitant]
     Indication: HYPERTENSION
     Dosage: DOSE: 1 TABLET
     Route: 048
     Dates: start: 20040131, end: 20070319
  8. LANIRAPID [Concomitant]
     Dosage: DOSE: 0.5 TABLET
     Route: 048
     Dates: start: 20040131
  9. SPILACTONE [Concomitant]
     Dosage: DOSE: 1 TABLET
     Route: 048
     Dates: start: 20040131
  10. LASIX [Concomitant]
     Dosage: DOSE: 1 TABLET
     Route: 048
     Dates: start: 20040131
  11. ASPIRIN [Concomitant]
     Indication: CEREBRAL INFARCTION
     Dosage: DOSE: 1 TABLET
     Route: 048
     Dates: start: 20050604
  12. FAMOTIDINE [Concomitant]
     Indication: GASTRIC ULCER
     Dosage: DOSE: 1 TABLET
     Route: 048
     Dates: start: 20040131
  13. MUCOSOLVAN [Concomitant]
     Indication: PULMONARY TUBERCULOSIS
     Route: 048
     Dates: start: 20051105
  14. SELBEX [Concomitant]
     Indication: GASTRIC ULCER
     Dosage: DOSE: 0.5 G
     Route: 048
     Dates: start: 20040131
  15. BERIZYM                            /00517401/ [Concomitant]
     Indication: GASTRIC ULCER
     Dosage: DOSE: 0.5 G
     Route: 048
     Dates: start: 20040131
  16. ANPLAG [Concomitant]
     Dates: start: 20060520, end: 20070312
  17. CHINESE HERBAL MEDICINE [Concomitant]
     Dates: start: 20060225, end: 20070312
  18. OPALMON [Concomitant]
     Dates: start: 20060225, end: 20070312

REACTIONS (2)
  - DRUG INTERACTION [None]
  - HYPOGLYCAEMIA [None]
